FAERS Safety Report 5322018-7 (Version None)
Quarter: 2007Q2

REPORT INFORMATION
  Report Type: 
  Country: None (occurrence: None)
  Receive Date: 20070511
  Receipt Date: 20070501
  Transmission Date: 20071010
  Serious: Yes (Death, Hospitalization)
  Sender: FDA-Public Use
  Company Number: CA-SP-2007-01488

PATIENT
  Age: 73 Year
  Sex: Male

DRUGS (1)
  1. IMOGAM RABIES [Suspect]
     Indication: ACCIDENTAL EXPOSURE
     Route: 065

REACTIONS (3)
  - BRAIN DEATH [None]
  - ENCEPHALITIS [None]
  - RABIES [None]
